FAERS Safety Report 13121284 (Version 9)
Quarter: 2020Q3

REPORT INFORMATION
  Report Type: Report from Study
  Country: US (occurrence: US)
  Receive Date: 20170117
  Receipt Date: 20200714
  Transmission Date: 20201102
  Serious: Yes (Other)
  Sender: FDA-Public Use
  Company Number: US-JNJFOC-20170108703

PATIENT
  Age: 64 Year
  Sex: Male
  Weight: 100.33 kg

DRUGS (12)
  1. PROPRANOLOL [Concomitant]
     Active Substance: PROPRANOLOL HYDROCHLORIDE
     Route: 065
  2. TIMOLOL. [Concomitant]
     Active Substance: TIMOLOL
     Route: 065
  3. FENOFIBRATE. [Concomitant]
     Active Substance: FENOFIBRATE
     Route: 065
  4. CISAPRIDE [Suspect]
     Active Substance: CISAPRIDE
     Indication: GASTROOESOPHAGEAL REFLUX DISEASE
     Route: 048
     Dates: start: 20040406, end: 20170110
  5. CISAPRIDE [Suspect]
     Active Substance: CISAPRIDE
     Route: 048
     Dates: start: 20170307, end: 20171122
  6. ACIPHEX [Concomitant]
     Active Substance: RABEPRAZOLE SODIUM
     Route: 065
  7. FENOFIBRATE. [Concomitant]
     Active Substance: FENOFIBRATE
     Route: 065
  8. ZOLPIDEM [Concomitant]
     Active Substance: ZOLPIDEM TARTRATE
     Route: 065
  9. PREVACID [Concomitant]
     Active Substance: LANSOPRAZOLE
     Route: 065
  10. CISAPRIDE [Suspect]
     Active Substance: CISAPRIDE
     Route: 048
     Dates: start: 201701, end: 2017
  11. WELCHOL [Concomitant]
     Active Substance: COLESEVELAM HYDROCHLORIDE
     Route: 065
  12. LOVASTATIN. [Concomitant]
     Active Substance: LOVASTATIN
     Route: 065

REACTIONS (1)
  - Electrocardiogram QT prolonged [Recovered/Resolved]

NARRATIVE: CASE EVENT DATE: 20161223
